FAERS Safety Report 9251454 (Version 1)
Quarter: 2013Q2

REPORT INFORMATION
  Report Type: Spontaneous
  Country: DE (occurrence: DE)
  Receive Date: 20130424
  Receipt Date: 20130424
  Transmission Date: 20140414
  Serious: Yes (Hospitalization)
  Sender: FDA-Public Use
  Company Number: DE-JNJFOC-20130408044

PATIENT
  Sex: Male

DRUGS (9)
  1. XEPLION [Suspect]
     Indication: PRODUCT USED FOR UNKNOWN INDICATION
     Route: 030
  2. XEPLION [Suspect]
     Indication: PRODUCT USED FOR UNKNOWN INDICATION
     Route: 030
  3. XEPLION [Suspect]
     Indication: PRODUCT USED FOR UNKNOWN INDICATION
     Route: 030
     Dates: start: 20130123
  4. CLOZAPIN [Suspect]
     Indication: PRODUCT USED FOR UNKNOWN INDICATION
     Route: 065
  5. HALDOL [Concomitant]
     Route: 065
  6. DIAZEPAM [Concomitant]
     Route: 065
  7. DIPIPERON [Concomitant]
     Route: 065
  8. ZOPICLONE [Concomitant]
     Route: 065
  9. CIPROBAY [Concomitant]
     Route: 065

REACTIONS (6)
  - Tremor [Recovering/Resolving]
  - Pyrexia [Recovering/Resolving]
  - Inappropriate schedule of drug administration [Recovering/Resolving]
  - Salivary hypersecretion [Recovering/Resolving]
  - Pallor [Recovering/Resolving]
  - Restlessness [Unknown]
